FAERS Safety Report 8094723-3 (Version None)
Quarter: 2012Q1

REPORT INFORMATION
  Report Type: 
  Country: None (occurrence: None)
  Receive Date: 20120129
  Receipt Date: 20111220
  Transmission Date: 20120608
  Serious: No
  Sender: FDA-Public Use
  Company Number: US-ABBOTT-11P-163-0885309-00

PATIENT
  Age: 34 Year
  Sex: Male

DRUGS (3)
  1. PREDNISONE TAB [Concomitant]
     Indication: COLITIS ULCERATIVE
     Dosage: SINCE AUG 2011 ON VARYING DOSES
     Route: 048
  2. ADDERALL 5 [Concomitant]
     Indication: ATTENTION DEFICIT/HYPERACTIVITY DISORDER
     Route: 048
  3. HUMIRA [Suspect]
     Indication: COLITIS ULCERATIVE
     Dosage: LOADING DOSE
     Dates: start: 20111214

REACTIONS (1)
  - INJECTION SITE PAIN [None]
